FAERS Safety Report 7553582-5 (Version None)
Quarter: 2011Q2

REPORT INFORMATION
  Report Type: 
  Country: None (occurrence: None)
  Receive Date: 20110617
  Receipt Date: 20110404
  Transmission Date: 20111010
  Serious: No
  Sender: FDA-Public Use
  Company Number: US-MYLANLABS-2011S1007211

PATIENT
  Age: 53 Year
  Sex: Male

DRUGS (1)
  1. GLIPIZIDE [Suspect]
     Route: 048
     Dates: start: 20110403, end: 20110403

REACTIONS (2)
  - HYPOGLYCAEMIA [None]
  - WRONG DRUG ADMINISTERED [None]
